FAERS Safety Report 20880248 (Version 1)
Quarter: 2022Q2

REPORT INFORMATION
  Report Type: Other
  Country: CN (occurrence: None)
  Receive Date: 20220526
  Receipt Date: 20220526
  Transmission Date: 20220720
  Serious: Yes (Other)
  Sender: FDA-Public Use
  Company Number: CN-ROCHE-3102446

PATIENT

DRUGS (2)
  1. BEVACIZUMAB [Suspect]
     Active Substance: BEVACIZUMAB
     Indication: Non-small cell lung cancer
     Dosage: A TOTAL OF 3 TREATMENTS
     Route: 042
  2. OSIMERTINIB [Suspect]
     Active Substance: OSIMERTINIB
     Indication: Non-small cell lung cancer
     Dosage: DURING THE TREATMENT, DRUG WITHDRAWAL OR EVERY OTHER DAY TREATMENT SHOULD BE USED ACCORDING TO THE S
     Route: 048

REACTIONS (1)
  - Renal impairment [Unknown]
